FAERS Safety Report 16165188 (Version 3)
Quarter: 2020Q2

REPORT INFORMATION
  Report Type: Spontaneous
  Country: US (occurrence: US)
  Receive Date: 20190405
  Receipt Date: 20200417
  Transmission Date: 20200713
  Serious: Yes (Hospitalization)
  Sender: FDA-Public Use
  Company Number: US-ACTELION-A-US2019-187309

PATIENT
  Sex: Male

DRUGS (1)
  1. OPSUMIT [Suspect]
     Active Substance: MACITENTAN
     Indication: PULMONARY ARTERIAL HYPERTENSION
     Dosage: 10 MG, QD
     Route: 048
     Dates: start: 20160814

REACTIONS (7)
  - Fluid retention [Unknown]
  - Dyspnoea [Unknown]
  - Pulmonary arterial hypertension [Unknown]
  - Pneumonia [Unknown]
  - Hypotension [Unknown]
  - Heart rate abnormal [Unknown]
  - Condition aggravated [Unknown]
